FAERS Safety Report 8276723-3 (Version None)
Quarter: 2012Q2

REPORT INFORMATION
  Report Type: 
  Country: None (occurrence: None)
  Receive Date: 20120412
  Receipt Date: 20120412
  Transmission Date: 20120825
  Serious: Yes (Hospitalization, Other)
  Sender: FDA-Public Use
  Company Number: None

PATIENT
  Age: 16 Year
  Sex: Female
  Weight: 47.627 kg

DRUGS (1)
  1. ABILIFY [Suspect]
     Indication: PRODUCT USED FOR UNKNOWN INDICATION
     Dosage: 1 TAB A DAY
     Route: 002
     Dates: start: 20120304, end: 20120429

REACTIONS (12)
  - QUALITY OF LIFE DECREASED [None]
  - ANTISOCIAL BEHAVIOUR [None]
  - WRONG DRUG ADMINISTERED [None]
  - SLEEP DISORDER [None]
  - ANXIETY [None]
  - MENTAL DISORDER [None]
  - DECREASED ACTIVITY [None]
  - RESTLESSNESS [None]
  - ACTIVITIES OF DAILY LIVING IMPAIRED [None]
  - DISTURBANCE IN ATTENTION [None]
  - LIP SWELLING [None]
  - OBESITY [None]
